FAERS Safety Report 5500452-X (Version None)
Quarter: 2007Q4

REPORT INFORMATION
  Report Type: 
  Country: None (occurrence: None)
  Receive Date: 20071029
  Receipt Date: 20071019
  Transmission Date: 20080405
  Serious: Yes (Hospitalization, Congenital Anomaly)
  Sender: FDA-Public Use
  Company Number: US-ROCHE-513180

PATIENT
  Sex: Female
  Weight: 9.2 kg

DRUGS (12)
  1. SAQUINAVIR [Suspect]
     Indication: HIV INFECTION
  2. NELFINAVIR [Suspect]
     Indication: HIV INFECTION
     Dates: start: 20030312
  3. NELFINAVIR [Suspect]
  4. ABACAVIR SULFATE [Suspect]
     Indication: HIV INFECTION
  5. 3TC [Suspect]
     Indication: HIV INFECTION
  6. NEVIRAPINE [Suspect]
     Indication: HIV INFECTION
     Dates: start: 20030312
  7. AZT [Suspect]
     Indication: HIV INFECTION
  8. EPIVIR [Suspect]
     Indication: HIV INFECTION
  9. ZIDOVUDINE [Suspect]
     Indication: HIV INFECTION
     Dates: start: 20030312
  10. DEXAMETHASONE 0.5MG TAB [Suspect]
     Indication: DRUG USE FOR UNKNOWN INDICATION
  11. INDOMETHACIN [Suspect]
     Indication: DRUG USE FOR UNKNOWN INDICATION
  12. DIDANOSINE [Concomitant]
     Indication: DRUG USE FOR UNKNOWN INDICATION
     Dates: start: 20030312

REACTIONS (5)
  - BREECH DELIVERY [None]
  - CONGENITAL ANOMALY [None]
  - JOINT DISLOCATION [None]
  - PATENT DUCTUS ARTERIOSUS [None]
  - PREMATURE BABY [None]
